FAERS Safety Report 9300173 (Version 1)
Quarter: 2013Q2

REPORT INFORMATION
  Report Type: Spontaneous
  Country: JP (occurrence: JP)
  Receive Date: 20130521
  Receipt Date: 20130521
  Transmission Date: 20140414
  Serious: Yes (Other)
  Sender: FDA-Public Use
  Company Number: PHHY2013JP048871

PATIENT
  Sex: 0

DRUGS (1)
  1. ZOMETA [Suspect]
     Dosage: UNK
     Route: 041

REACTIONS (3)
  - Osteonecrosis of jaw [Unknown]
  - Haemorrhage subcutaneous [Unknown]
  - Platelet count increased [Unknown]
